FAERS Safety Report 7180464-3 (Version None)
Quarter: 2010Q4

REPORT INFORMATION
  Report Type: 
  Country: None (occurrence: None)
  Receive Date: 20101221
  Receipt Date: 20101218
  Transmission Date: 20110411
  Serious: Yes (Death)
  Sender: FDA-Public Use
  Company Number: BE-ABBOTT-10P-013-0690839-00

PATIENT
  Sex: Female
  Weight: 50 kg

DRUGS (5)
  1. HUMIRA [Suspect]
     Indication: RHEUMATOID ARTHRITIS
     Dates: start: 20070315, end: 20101110
  2. METHOTREXATE [Suspect]
     Indication: RHEUMATOID ARTHRITIS
     Route: 048
     Dates: end: 20101120
  3. CORUNO [Concomitant]
     Indication: MYOCARDIAL ISCHAEMIA
     Route: 048
  4. ZESTRIL [Concomitant]
     Indication: HYPERTENSION
     Route: 048
  5. ASAFLOW [Concomitant]
     Indication: MYOCARDIAL ISCHAEMIA

REACTIONS (3)
  - DYSPNOEA [None]
  - LEUKOPENIA [None]
  - SUDDEN DEATH [None]
